FAERS Safety Report 14267150 (Version 2)
Quarter: 2018Q1

REPORT INFORMATION
  Report Type: Spontaneous
  Country: JP (occurrence: JP)
  Receive Date: 20171211
  Receipt Date: 20180130
  Transmission Date: 20180508
  Serious: Yes (Hospitalization)
  Sender: FDA-Public Use
  Company Number: JP-009507513-1712JPN000853J

PATIENT
  Age: 30 Year
  Sex: Female

DRUGS (6)
  1. THEOPHYLLINE [Suspect]
     Active Substance: THEOPHYLLINE ANHYDROUS
     Dosage: 100 MG, UNK
     Route: 048
  2. JANUVIA [Suspect]
     Active Substance: SITAGLIPTIN PHOSPHATE
     Dosage: 200 MG, UNK
     Route: 048
  3. PRANLUKAST [Suspect]
     Active Substance: PRANLUKAST
     Dosage: 225 MG, UNK
     Route: 048
  4. BETANIS [Suspect]
     Active Substance: MIRABEGRON
     Dosage: 1500 MG, UNK
     Route: 048
  5. BEPOTASTINE BESYLATE [Suspect]
     Active Substance: BEPOTASTINE BESILATE
     Dosage: 10 MG, UNK
     Route: 048
  6. LEVOMEPROMAZINE [Suspect]
     Active Substance: LEVOMEPROMAZINE
     Dosage: 350 MG, UNK
     Route: 048

REACTIONS (1)
  - Intentional overdose [Unknown]
